FAERS Safety Report 4899073-1 (Version None)
Quarter: 2006Q1

REPORT INFORMATION
  Report Type: 
  Country: None (occurrence: None)
  Receive Date: 20060130
  Receipt Date: 20060116
  Transmission Date: 20060701
  Serious: Yes (Hospitalization)
  Sender: FDA-Public Use
  Company Number: 02100-JPN-05-0665

PATIENT
  Age: 68 Year
  Sex: Male

DRUGS (20)
  1. CILOSTAZOL [Suspect]
     Indication: LACUNAR INFARCTION
     Dosage: 200 MG, ORAL
     Route: 048
     Dates: start: 20041202
  2. FAMOTIDINE [Concomitant]
  3. MAGNESIUM OXIDE [Concomitant]
  4. ZOLPIDEM TARTRATE [Concomitant]
  5. AMLODIPINE BESYLATE [Concomitant]
  6. VALSARTAN [Concomitant]
  7. HUMAN INSULIN (GENETICAL RECOMBINATION) [Concomitant]
  8. NON-PYRINE PREPARATION FOR COLD SYNDROME [Concomitant]
  9. CEFCAPENE PIVOXIL HYDROCHLORIDE [Concomitant]
  10. AMBROXOL HYDROCHLORIDE [Concomitant]
  11. SENNOSIDE [Concomitant]
  12. CLARITHROMYCIN [Concomitant]
  13. TRANEXAMIC ACID [Concomitant]
  14. SERRAPEPTASE [Concomitant]
  15. RABEPRAZOLE SODIUM [Concomitant]
  16. SULPIRIDE [Concomitant]
  17. MOSAPRIDE CITRATE [Concomitant]
  18. DAI-KENCHU-TO [Concomitant]
  19. DAIO-KANZO-TO [Concomitant]
  20. FLUVOXAMINE MALEATE [Concomitant]

REACTIONS (6)
  - CEREBRAL INFARCTION [None]
  - DEPRESSION [None]
  - DIABETES MELLITUS INADEQUATE CONTROL [None]
  - GLYCOSYLATED HAEMOGLOBIN INCREASED [None]
  - ILEUS PARALYTIC [None]
  - NASOPHARYNGITIS [None]
